FAERS Safety Report 16081265 (Version 1)
Quarter: 2019Q1

REPORT INFORMATION
  Report Type: Spontaneous
  Country: ZA (occurrence: ZA)
  Receive Date: 20190316
  Receipt Date: 20190316
  Transmission Date: 20190418
  Serious: Yes (Death, Hospitalization)
  Sender: FDA-Public Use
  Company Number: ZA-ACCORD-111693

PATIENT
  Age: 48 Year
  Sex: Female
  Weight: 65.4 kg

DRUGS (3)
  1. OXALIPLATIN INTAS [Suspect]
     Active Substance: OXALIPLATIN
     Indication: COLON CANCER STAGE III
     Dosage: STRENGTH: 100 MG
     Route: 042
     Dates: start: 20190206, end: 20190206
  2. LEUCOVORIN ABIC [Concomitant]
     Indication: COLON CANCER
     Dosage: STRENGTH: 300 MG
     Route: 042
     Dates: start: 20190206, end: 20190206
  3. FLURACEDYL [Concomitant]
     Active Substance: FLUOROURACIL
     Indication: COLON CANCER
     Dosage: 4200 MG BOLUS OVER 46 HOURS?STRENGTH: 100 ML INJECTION
     Route: 042
     Dates: start: 20190206, end: 20190208

REACTIONS (3)
  - Mucosal inflammation [Fatal]
  - Dermatitis [Fatal]
  - Bicytopenia [Fatal]

NARRATIVE: CASE EVENT DATE: 20190215
